FAERS Safety Report 19870142 (Version 2)
Quarter: 2021Q4

REPORT INFORMATION
  Report Type: Spontaneous
  Country: US (occurrence: US)
  Receive Date: 20210922
  Receipt Date: 20211206
  Transmission Date: 20220304
  Serious: Yes (Hospitalization, Other)
  Sender: FDA-Public Use
  Company Number: US-AMNEAL PHARMACEUTICALS-2021-AMRX-03809

PATIENT
  Age: 1 Year
  Sex: Male
  Weight: 14 kg

DRUGS (3)
  1. VIGABATRIN [Suspect]
     Active Substance: VIGABATRIN
     Indication: Infantile spasms
     Dosage: 15 MILLILITER (750MG), 2X/DAY
     Route: 048
  2. VIGABATRIN [Suspect]
     Active Substance: VIGABATRIN
     Dosage: 20 MILLILITER (1000MG), 2X/DAY
     Route: 048
  3. VIGABATRIN [Suspect]
     Active Substance: VIGABATRIN
     Dosage: 20 MILLILITER (1000MG), 2X/DAY
     Route: 048

REACTIONS (3)
  - Adverse event [Unknown]
  - Respiratory disorder [Unknown]
  - Seizure [Unknown]

NARRATIVE: CASE EVENT DATE: 20211001
